FAERS Safety Report 24159884 (Version 3)
Quarter: 2025Q2

REPORT INFORMATION
  Report Type: Report from Study
  Country: US (occurrence: US)
  Receive Date: 20240731
  Receipt Date: 20250627
  Transmission Date: 20250717
  Serious: Yes (Hospitalization, Other)
  Sender: ABBVIE
  Company Number: US-ABBVIE-5861181

PATIENT
  Age: 49 Year
  Sex: Female

DRUGS (2)
  1. RINVOQ [Suspect]
     Active Substance: UPADACITINIB
     Indication: Rheumatoid arthritis
     Dosage: FORM STRENGTH: 15 MG
     Route: 048
     Dates: start: 202402, end: 20240615
  2. RINVOQ [Suspect]
     Active Substance: UPADACITINIB
     Indication: Rheumatoid arthritis
     Dosage: FORM STRENGTH: 15 MG
     Route: 048
     Dates: start: 202502

REACTIONS (15)
  - Renal failure [Unknown]
  - Type 2 diabetes mellitus [Unknown]
  - Taste disorder [Unknown]
  - Abdominal distension [Unknown]
  - Musculoskeletal disorder [Unknown]
  - Fall [Unknown]
  - Rhabdomyolysis [Unknown]
  - Clostridium difficile infection [Unknown]
  - Blood potassium decreased [Unknown]
  - Haemoglobin decreased [Unknown]
  - Blood magnesium decreased [Unknown]
  - Blood iron decreased [Unknown]
  - Feeding disorder [Unknown]
  - Pain [Unknown]
  - Pyrexia [Recovering/Resolving]

NARRATIVE: CASE EVENT DATE: 20240101
